FAERS Safety Report 6051540-3 (Version None)
Quarter: 2009Q1

REPORT INFORMATION
  Report Type: 
  Country: None (occurrence: None)
  Receive Date: 20090126
  Receipt Date: 20090116
  Transmission Date: 20090719
  Serious: Yes (Hospitalization)
  Sender: FDA-Public Use
  Company Number: A0764978A

PATIENT
  Age: 79 Year
  Sex: Male
  Weight: 72.7 kg

DRUGS (1)
  1. AVANDIA [Suspect]
     Dosage: 4MG PER DAY
     Route: 048
     Dates: start: 20030301, end: 20040301

REACTIONS (1)
  - MYOCARDIAL INFARCTION [None]
